FAERS Safety Report 4421856-2 (Version None)
Quarter: 2004Q3

REPORT INFORMATION
  Report Type: 
  Country: None (occurrence: None)
  Receive Date: 20040805
  Receipt Date: 20040805
  Transmission Date: 20050211
  Serious: Yes (Other)
  Sender: FDA-Public Use
  Company Number: None

PATIENT
  Age: 59 Year
  Sex: Male
  Weight: 103 kg

DRUGS (17)
  1. FLUNISOLIDE [Suspect]
     Route: 045
  2. CEPHALEXIN [Concomitant]
  3. ASPIRIN [Concomitant]
  4. CARVEDILOL [Concomitant]
  5. FELODIPINE [Concomitant]
  6. LISINOPRIL [Concomitant]
  7. MULTI-VITAMINS [Concomitant]
  8. SPIRONOLACTONE [Concomitant]
  9. TERAZOSIN HCL [Concomitant]
  10. SIMVASTATIN [Concomitant]
  11. MONTELUKABT NA [Concomitant]
  12. FORMOTEROL FUMARATE [Concomitant]
  13. LORATADINE [Concomitant]
  14. PRECISION Q-I-D GLUCOSE TEST STRIP [Concomitant]
  15. GABAPENTIN [Concomitant]
  16. FLUNISOLIDE 25 MCG/MENTHOL INH [Concomitant]
  17. SODIUM CHLORIDE NASAL SPRAY [Concomitant]

REACTIONS (4)
  - LACRIMATION INCREASED [None]
  - NASAL DISCOMFORT [None]
  - PRURITUS [None]
  - THROAT IRRITATION [None]
